FAERS Safety Report 17456980 (Version 1)
Quarter: 2020Q1

REPORT INFORMATION
  Report Type: Spontaneous
  Country: US (occurrence: US)
  Receive Date: 20200225
  Receipt Date: 20200225
  Transmission Date: 20200409
  Serious: No
  Sender: FDA-Public Use
  Company Number: US-SA-2020SA042280

PATIENT
  Age: 47 Year
  Sex: Female
  Weight: 104.31 kg

DRUGS (1)
  1. DUPIXENT [Suspect]
     Active Substance: DUPILUMAB
     Dosage: 300 MG, QOW
     Route: 058
     Dates: start: 20191101

REACTIONS (4)
  - Hordeolum [Unknown]
  - Eye pain [Unknown]
  - Eye pruritus [Unknown]
  - Chalazion [Unknown]
